FAERS Safety Report 15802900 (Version 7)
Quarter: 2020Q4

REPORT INFORMATION
  Report Type: Spontaneous
  Country: US (occurrence: US)
  Receive Date: 20190109
  Receipt Date: 20201214
  Transmission Date: 20210113
  Serious: Yes (Other)
  Sender: FDA-Public Use
  Company Number: US-PFIZER INC-2019002169

PATIENT
  Age: 59 Year
  Sex: Female
  Weight: 74.84 kg

DRUGS (9)
  1. DILANTIN [Suspect]
     Active Substance: PHENYTOIN
     Indication: EPILEPSY
     Dosage: 50 MG, ONCE A DAY (AT NIGHT) (AT BEDTIME)
     Route: 048
     Dates: start: 20100317
  2. DILANTIN [Suspect]
     Active Substance: PHENYTOIN
     Indication: EPILEPSY
     Dosage: 100 MG, 3X/DAY (100MG ORAL CAPSULE THREE TIMES DAILY)
     Route: 048
     Dates: start: 1979
  3. DILANTIN [Suspect]
     Active Substance: PHENYTOIN
     Indication: GENERALISED TONIC-CLONIC SEIZURE
     Dosage: 300 MG, DAILY (2 CAPSULES BY MOUTH IN THE MORNING AND 1 CAPSULE BY MOUTH AT NIGHT)
     Route: 048
  4. TRAVATAN [Concomitant]
     Active Substance: TRAVOPROST
     Dosage: 1 GTT, 1X/DAY[ONE DROP IN THE LEFT EYE ONCE A DAY AT NIGHT]
     Route: 047
     Dates: start: 201810
  5. DILANTIN [Suspect]
     Active Substance: PHENYTOIN
     Dosage: 100 MG, 3X/DAY (100MG ORAL CAPSULE THREE TIMES DAILY)
     Route: 048
  6. ALENDRONATE [Concomitant]
     Active Substance: ALENDRONATE SODIUM
     Indication: OSTEOPOROSIS
     Dosage: 70 MG, WEEKLY (ONE TABLET ONCE A WEEK)
  7. DILANTIN [Suspect]
     Active Substance: PHENYTOIN
     Indication: GENERALISED TONIC-CLONIC SEIZURE
  8. TRAVATAN [Concomitant]
     Active Substance: TRAVOPROST
     Indication: GLAUCOMA
     Dosage: UNK
     Route: 047
     Dates: start: 201807, end: 2018
  9. TRAVATAN [Concomitant]
     Active Substance: TRAVOPROST
     Dosage: UNK
     Route: 047

REACTIONS (5)
  - Eyelid ptosis [Recovered/Resolved]
  - Confusional state [Unknown]
  - Body height decreased [Unknown]
  - Visual impairment [Recovered/Resolved]
  - Feeling abnormal [Unknown]

NARRATIVE: CASE EVENT DATE: 2008
